FAERS Safety Report 6248292-0 (Version None)
Quarter: 2009Q2

REPORT INFORMATION
  Report Type: 
  Country: None (occurrence: None)
  Receive Date: 20090629
  Receipt Date: 20090617
  Transmission Date: 20091009
  Serious: Yes (Other)
  Sender: FDA-Public Use
  Company Number: PHEH2008US02671

PATIENT
  Sex: Male

DRUGS (10)
  1. ZOMETA [Suspect]
     Indication: PROSTATE CANCER
  2. CHEMOTHERAPEUTICS NOS [Concomitant]
  3. DEXAMETHASONE [Concomitant]
  4. RADIATION THERAPY [Concomitant]
     Indication: ASTHENIA
     Dosage: UNK
     Dates: start: 20020101
  5. RADIATION THERAPY [Concomitant]
     Indication: HYPOAESTHESIA
  6. FLOMAX [Concomitant]
  7. LOTREL [Concomitant]
  8. ZOLADEX [Concomitant]
  9. PAXIL [Concomitant]
  10. DYAZIDE [Concomitant]

REACTIONS (15)
  - ANXIETY [None]
  - BONE DISORDER [None]
  - BONE OPERATION [None]
  - CERVICOBRACHIAL SYNDROME [None]
  - CHEST PAIN [None]
  - DECREASED INTEREST [None]
  - DEPRESSION [None]
  - GYNAECOMASTIA [None]
  - IMPAIRED HEALING [None]
  - INFECTION [None]
  - INJURY [None]
  - NUTRITIONAL CONDITION ABNORMAL [None]
  - OSTEONECROSIS [None]
  - PAIN [None]
  - TOOTH EXTRACTION [None]
